FAERS Safety Report 8166885-0 (Version None)
Quarter: 2012Q1

REPORT INFORMATION
  Report Type: 
  Country: None (occurrence: None)
  Receive Date: 20120103
  Receipt Date: 20111021
  Transmission Date: 20120608
  Serious: No
  Sender: FDA-Public Use
  Company Number: AE-2011-002573

PATIENT
  Age: 55 Year
  Sex: Female
  Weight: 61.2356 kg

DRUGS (6)
  1. RIBAVIRIN [Concomitant]
  2. CORTAID SPRAY (HYDROCORTISONE ACETATE) [Concomitant]
  3. INCIVEK [Suspect]
     Dosage: 2250 MG (750 MG,3 IN 1 D),ORAL
     Route: 048
     Dates: start: 20110903
  4. BENADRYL [Concomitant]
  5. PROMETHAZINE [Concomitant]
  6. PEGINTERFERON (PEGINTERFERON ALFA-2A) [Concomitant]

REACTIONS (5)
  - PRURITUS [None]
  - ANAEMIA [None]
  - VOMITING [None]
  - ALOPECIA [None]
  - NAUSEA [None]
